FAERS Safety Report 15403214 (Version 1)
Quarter: 2018Q3

REPORT INFORMATION
  Report Type: Spontaneous
  Country: US (occurrence: US)
  Receive Date: 20180918
  Receipt Date: 20180918
  Transmission Date: 20181010
  Serious: Yes (Death)
  Sender: FDA-Public Use
  Company Number: None

PATIENT
  Age: 53 Year
  Sex: Male

DRUGS (6)
  1. HYOSCYAMINE. [Concomitant]
     Active Substance: HYOSCYAMINE
  2. TACROLIMUS. [Suspect]
     Active Substance: TACROLIMUS
     Indication: RENAL TRANSPLANT
     Route: 048
     Dates: start: 20180822
  3. ALFUZOSIN [Concomitant]
     Active Substance: ALFUZOSIN
  4. FINASTERIDE. [Concomitant]
     Active Substance: FINASTERIDE
  5. ACEPHEN [Concomitant]
     Active Substance: ACETAMINOPHEN
  6. MORPHINE SUL [Concomitant]
     Active Substance: MORPHINE SULFATE

REACTIONS (1)
  - Neoplasm malignant [None]

NARRATIVE: CASE EVENT DATE: 20180824
